FAERS Safety Report 14084800 (Version 1)
Quarter: 2017Q4

REPORT INFORMATION
  Report Type: Spontaneous
  Country: FR (occurrence: FR)
  Receive Date: 20171013
  Receipt Date: 20171013
  Transmission Date: 20180321
  Serious: Yes (Hospitalization)
  Sender: FDA-Public Use
  Company Number: FR-ROCHE-2006146

PATIENT
  Age: 62 Year
  Sex: Male

DRUGS (11)
  1. UVEDOSE [Concomitant]
     Active Substance: CHOLECALCIFEROL
     Dosage: 1 AMPOULE EVERY 2 WEEKS FOR 47 DAYS
     Route: 065
  2. NOVORAPID [Concomitant]
     Active Substance: INSULIN ASPART
     Dosage: ACCORDING TO BLOOD SUGAR LEVEL
     Route: 065
  3. MABTHERA [Suspect]
     Active Substance: RITUXIMAB
     Indication: VASCULITIS
     Route: 042
  4. ZELITREX [Concomitant]
     Active Substance: VALACYCLOVIR HYDROCHLORIDE
     Dosage: 0.5-0-0 (I.E. HALF IN THE MORNING)
     Route: 065
  5. CORTANCYL [Concomitant]
     Active Substance: PREDNISONE
     Dosage: 80MG IN THE MORNING FOR 26 DAYS
     Route: 065
  6. COUMADINE [Suspect]
     Active Substance: WARFARIN SODIUM
     Indication: EMBOLISM
     Route: 048
     Dates: start: 20170821, end: 20170907
  7. CETIRIZINE [Concomitant]
     Active Substance: CETIRIZINE HYDROCHLORIDE
     Dosage: 0-0-1 (I.E. ONE IN THE EVENING)
     Route: 065
  8. EPITOMAX [Concomitant]
     Active Substance: TOPIRAMATE
     Dosage: 100MG: 1-0-1
     Route: 065
  9. PANTOPRAZOLE [Concomitant]
     Active Substance: PANTOPRAZOLE
     Dosage: 20MG: 0-0-1
     Route: 065
  10. CALCIPARINE [Concomitant]
     Active Substance: HEPARIN CALCIUM
  11. PYRIDOSTIGMINE [Concomitant]
     Active Substance: PYRIDOSTIGMINE
     Dosage: 1-1-1 (1 IN MORNING-1 IN AFTERNOON-1 IN EVENING)
     Route: 065

REACTIONS (4)
  - Anaemia [Not Recovered/Not Resolved]
  - Glomerulonephritis [Not Recovered/Not Resolved]
  - Off label use [Unknown]
  - Intentional product use issue [Unknown]

NARRATIVE: CASE EVENT DATE: 20170906
